FAERS Safety Report 17721596 (Version 3)
Quarter: 2020Q2

REPORT INFORMATION
  Report Type: Spontaneous
  Country: US (occurrence: US)
  Receive Date: 20200429
  Receipt Date: 20200623
  Transmission Date: 20200714
  Serious: No
  Sender: FDA-Public Use
  Company Number: US-BIOGEN-2020BI00866614

PATIENT
  Sex: Female

DRUGS (1)
  1. TYSABRI [Suspect]
     Active Substance: NATALIZUMAB
     Indication: MULTIPLE SCLEROSIS
     Route: 065
     Dates: start: 20200219

REACTIONS (6)
  - Dizziness [Unknown]
  - Headache [Unknown]
  - General physical health deterioration [Unknown]
  - Malaise [Unknown]
  - Fatigue [Unknown]
  - Balance disorder [Unknown]
